FAERS Safety Report 14160896 (Version 1)
Quarter: 2017Q4

REPORT INFORMATION
  Report Type: Spontaneous
  Country: US (occurrence: US)
  Receive Date: 20171106
  Receipt Date: 20171106
  Transmission Date: 20180321
  Serious: Yes (Life-Threatening, Hospitalization, Disabling, Other)
  Sender: FDA-Public Use
  Company Number: US-PFIZER INC-2017356990

PATIENT
  Age: 67 Year
  Sex: Female
  Weight: 49.9 kg

DRUGS (7)
  1. TRAZODONE [Concomitant]
     Active Substance: TRAZODONE HYDROCHLORIDE
     Indication: SLEEP DISORDER
     Dosage: 100 MG, AS NEEDED (TWO TABLETS BY MOUTH AT BEDTIME)
     Route: 048
     Dates: start: 2008
  2. MELOXICAM. [Concomitant]
     Active Substance: MELOXICAM
     Indication: ARTHRITIS
     Dosage: 15 MG, 1X/DAY
     Route: 048
     Dates: start: 2015
  3. CARISOPRODOL. [Concomitant]
     Active Substance: CARISOPRODOL
     Indication: MUSCLE SPASMS
     Dosage: 350 MG, AS NEEDED(THREE TIMES A DAY AS NEEDED BY MOUTH)
     Route: 048
     Dates: start: 2008
  4. EFFEXOR [Concomitant]
     Active Substance: VENLAFAXINE HYDROCHLORIDE
     Indication: PAIN
     Dosage: 75 MG, 2X/DAY
     Route: 048
     Dates: start: 2008
  5. HYDROCODONE BITARTRATE AND ACETAMINOPHEN [Concomitant]
     Active Substance: ACETAMINOPHEN\HYDROCODONE BITARTRATE
     Indication: PAIN
     Dosage: 1 DF, AS NEEDED  [HYDROCODONE BITARTRATE: 10MG/ACETAMINOPHEN:325MG]( EVERY 4 HOURS AS NEEDED)
     Route: 048
     Dates: start: 2008
  6. MONTELUKAST [Concomitant]
     Active Substance: MONTELUKAST SODIUM
     Indication: HYPERSENSITIVITY
     Dosage: 10 MG, 1X/DAY
     Route: 048
     Dates: start: 2016
  7. LYRICA [Suspect]
     Active Substance: PREGABALIN
     Indication: NEUROPATHY PERIPHERAL
     Dosage: 150 MG, 2X/DAY
     Route: 048
     Dates: start: 2008

REACTIONS (8)
  - Radius fracture [Recovering/Resolving]
  - Ulna fracture [Recovering/Resolving]
  - Haemorrhage [Unknown]
  - Pain [Recovering/Resolving]
  - Immobile [Unknown]
  - Osteoporosis [Unknown]
  - Fall [Recovering/Resolving]
  - Skeletal injury [Recovering/Resolving]

NARRATIVE: CASE EVENT DATE: 20171015
